FAERS Safety Report 10160912 (Version 1)
Quarter: 2014Q2

REPORT INFORMATION
  Report Type: Spontaneous
  Country: US (occurrence: US)
  Receive Date: 20140508
  Receipt Date: 20140508
  Transmission Date: 20141212
  Serious: No
  Sender: FDA-Public Use
  Company Number: US-009507513-1404USA015432

PATIENT
  Sex: Female

DRUGS (1)
  1. CLARITIN [Suspect]
     Indication: PRODUCT USED FOR UNKNOWN INDICATION
     Dosage: UNK, UNKNOWN
     Route: 048

REACTIONS (8)
  - Feeling abnormal [Unknown]
  - Adverse event [Unknown]
  - Abdominal pain upper [Unknown]
  - Flatulence [Unknown]
  - Fatigue [Unknown]
  - Wrong technique in drug usage process [Unknown]
  - Underdose [Unknown]
  - Off label use [Unknown]
